FAERS Safety Report 8341342-7 (Version None)
Quarter: 2012Q2

REPORT INFORMATION
  Report Type: 
  Country: None (occurrence: None)
  Receive Date: 20120507
  Receipt Date: 20120425
  Transmission Date: 20120825
  Serious: Yes (Other)
  Sender: FDA-Public Use
  Company Number: US-BAYER-2011-035600

PATIENT
  Age: 33 Year
  Sex: Female
  Weight: 92 kg

DRUGS (5)
  1. ANTIDEPRESSANTS [Concomitant]
     Dosage: UNK
  2. MULTI-VITAMINS [Suspect]
     Indication: VITAMIN SUPPLEMENTATION
     Route: 048
  3. CHOLESTEROL- AND TRIGLYCERIDE REDUCERS [Concomitant]
  4. THYROID TAB [Concomitant]
     Dosage: UNK
  5. TPN [Concomitant]

REACTIONS (2)
  - FAECES DISCOLOURED [None]
  - RECTAL HAEMORRHAGE [None]
